FAERS Safety Report 7716723-2 (Version None)
Quarter: 2011Q3

REPORT INFORMATION
  Report Type: 
  Country: None (occurrence: None)
  Receive Date: 20110829
  Receipt Date: 20110818
  Transmission Date: 20111222
  Serious: Yes (Hospitalization)
  Sender: FDA-Public Use
  Company Number: CL-MEDIMMUNE-MEDI-0013321

PATIENT
  Sex: Female
  Weight: 5 kg

DRUGS (5)
  1. SYNAGIS [Suspect]
     Route: 030
     Dates: start: 20110524, end: 20110524
  2. VANCOMYCIN [Concomitant]
     Dates: start: 20110617, end: 20110627
  3. SYNAGIS [Suspect]
     Route: 030
  4. CEFOTAXIME SODIUM [Concomitant]
     Dates: start: 20110617, end: 20110627
  5. ALBUTEROL [Concomitant]
     Dates: start: 20110613

REACTIONS (5)
  - PNEUMONIA ADENOVIRAL [None]
  - OXYGEN SATURATION DECREASED [None]
  - APNOEA [None]
  - ADENOVIRUS INFECTION [None]
  - RESPIRATORY DISORDER [None]
